FAERS Safety Report 26090330 (Version 1)
Quarter: 2025Q4

REPORT INFORMATION
  Report Type: Report from Study
  Country: US (occurrence: US)
  Receive Date: 20251126
  Receipt Date: 20251126
  Transmission Date: 20260118
  Serious: Yes (Other)
  Sender: ETON PHARMACEUTICALS, INC
  Company Number: US-ETON-2025ETO000571

PATIENT

DRUGS (5)
  1. ALKINDI SPRINKLE [Suspect]
     Active Substance: HYDROCORTISONE
     Indication: Primary adrenal insufficiency
     Dosage: 1 MILLIGRAM, QID
     Route: 048
     Dates: start: 20220131
  2. FLUDROCORTISONE [Concomitant]
     Active Substance: FLUDROCORTISONE
     Indication: Product used for unknown indication
     Dosage: UNK
  3. CORICIDIN [ACETYLSALICYLIC ACID;CHLORPHENAMINE MALEATE] [Concomitant]
     Indication: Product used for unknown indication
     Dosage: UNK
  4. CRENESSITY [Concomitant]
     Active Substance: CRINECERFONT
     Indication: Product used for unknown indication
     Dosage: UNK
  5. SULFAMETHOXAZOLE\TRIMETHOPRIM [Concomitant]
     Active Substance: SULFAMETHOXAZOLE\TRIMETHOPRIM
     Indication: Product used for unknown indication

REACTIONS (2)
  - Pulmonary congestion [Recovered/Resolved]
  - Viral infection [Recovered/Resolved]

NARRATIVE: CASE EVENT DATE: 20251030
